FAERS Safety Report 8073499-X (Version None)
Quarter: 2012Q1

REPORT INFORMATION
  Report Type: 
  Country: None (occurrence: None)
  Receive Date: 20120126
  Receipt Date: 20120126
  Transmission Date: 20120608
  Serious: Yes (Other)
  Sender: FDA-Public Use
  Company Number: None

PATIENT
  Age: 79 Year
  Weight: 43.091 kg

DRUGS (1)
  1. ZYMAXID [Suspect]
     Indication: CATARACT OPERATION
     Dosage: 2 DROPS
     Route: 047
     Dates: start: 20111113, end: 20111127

REACTIONS (4)
  - INFLUENZA LIKE ILLNESS [None]
  - OEDEMA PERIPHERAL [None]
  - JOINT SWELLING [None]
  - ARTHRALGIA [None]
